FAERS Safety Report 6863071-9 (Version None)
Quarter: 2010Q3

REPORT INFORMATION
  Report Type: 
  Country: None (occurrence: None)
  Receive Date: 20100721
  Receipt Date: 20100709
  Transmission Date: 20110219
  Serious: Yes (Other)
  Sender: FDA-Public Use
  Company Number: AU-WYE-G06379410

PATIENT
  Age: 28 Year
  Sex: Female

DRUGS (4)
  1. EFFEXOR XR [Suspect]
     Dosage: 75MG FREQUENCY UNSPECIFIED
     Dates: start: 20100702, end: 20100701
  2. EFFEXOR XR [Suspect]
     Dosage: ^250MG^ FREQUENCY UNSPECIFIED
     Dates: start: 20100701, end: 20100701
  3. EFFEXOR XR [Suspect]
     Dosage: 225 MG FREQUENCY UNSPECIFIED
     Dates: start: 20100708
  4. VITAMINS [Concomitant]

REACTIONS (3)
  - DRUG WITHDRAWAL SYNDROME [None]
  - NAUSEA [None]
  - SUICIDE ATTEMPT [None]
